FAERS Safety Report 20004218 (Version 1)
Quarter: 2021Q4

REPORT INFORMATION
  Report Type: Spontaneous
  Country: US (occurrence: US)
  Receive Date: 20211028
  Receipt Date: 20211028
  Transmission Date: 20220304
  Serious: No
  Sender: FDA-Public Use
  Company Number: US-BIOVITRUM-2021US9545

PATIENT
  Sex: Female
  Weight: 7 kg

DRUGS (3)
  1. SYNAGIS [Suspect]
     Active Substance: PALIVIZUMAB
     Indication: Premature baby
     Route: 030
  2. IRON\VITAMINS [Concomitant]
     Active Substance: IRON\VITAMINS
  3. SYNAGIS [Suspect]
     Active Substance: PALIVIZUMAB
     Indication: Lung disorder

REACTIONS (2)
  - Ear infection [Unknown]
  - Body temperature increased [Unknown]
